FAERS Safety Report 6813204-5 (Version None)
Quarter: 2010Q3

REPORT INFORMATION
  Report Type: 
  Country: None (occurrence: None)
  Receive Date: 20100701
  Receipt Date: 20100623
  Transmission Date: 20110219
  Serious: Yes (Hospitalization)
  Sender: FDA-Public Use
  Company Number: US-SANOFI-AVENTIS-2010SA036762

PATIENT
  Age: 82 Year
  Sex: Male

DRUGS (3)
  1. LANTUS [Suspect]
     Indication: TYPE 2 DIABETES MELLITUS
     Dosage: DOSE:18 UNIT(S)
     Route: 058
  2. OPTICLICK [Suspect]
     Indication: TYPE 2 DIABETES MELLITUS
  3. PREDNISONE TAB [Suspect]
     Indication: INFLAMMATION
     Route: 065
     Dates: end: 20100601

REACTIONS (4)
  - BLOOD GLUCOSE INCREASED [None]
  - HYPOACUSIS [None]
  - INFLAMMATION [None]
  - SYNOVIAL CYST [None]
